FAERS Safety Report 6150844-3 (Version None)
Quarter: 2009Q2

REPORT INFORMATION
  Report Type: 
  Country: None (occurrence: None)
  Receive Date: 20090408
  Receipt Date: 20090326
  Transmission Date: 20091009
  Serious: Yes (Other)
  Sender: FDA-Public Use
  Company Number: 2009SP006939

PATIENT
  Age: 32 Year
  Sex: Female
  Weight: 47.7 kg

DRUGS (1)
  1. CORRECTOL [Suspect]
     Indication: CONSTIPATION
     Dosage: 15 MG, PO
     Route: 048
     Dates: start: 20081228

REACTIONS (4)
  - ABDOMINAL PAIN [None]
  - BLOOD PRESSURE DIASTOLIC DECREASED [None]
  - HYPOKALAEMIA [None]
  - NAUSEA [None]
